FAERS Safety Report 4455165-2 (Version None)
Quarter: 2004Q3

REPORT INFORMATION
  Report Type: 
  Country: None (occurrence: None)
  Receive Date: 20040917
  Receipt Date: 20040909
  Transmission Date: 20050211
  Serious: Yes (Hospitalization)
  Sender: FDA-Public Use
  Company Number: J081-002-001650

PATIENT
  Age: 72 Year
  Sex: Male

DRUGS (4)
  1. ARICEPT [Suspect]
     Indication: DEMENTIA ALZHEIMER'S TYPE
     Dosage: SEE IMAGE
     Route: 048
     Dates: start: 20010523, end: 20010603
  2. ARICEPT [Suspect]
     Indication: DEMENTIA ALZHEIMER'S TYPE
     Dosage: SEE IMAGE
     Route: 048
     Dates: start: 20010604, end: 20040512
  3. HIRNAMIN (LEVOMEPROMAZINE) [Suspect]
     Indication: INSOMNIA
     Dosage: 5 MG, ORAL
     Route: 048
     Dates: start: 20031020, end: 20040512
  4. DIAZEPAM [Concomitant]

REACTIONS (7)
  - ARTHRALGIA [None]
  - DYSSTASIA [None]
  - GAIT DISTURBANCE [None]
  - INSOMNIA [None]
  - NECK PAIN [None]
  - PYREXIA [None]
  - RHABDOMYOLYSIS [None]
